FAERS Safety Report 9290421 (Version 1)
Quarter: 2013Q2

REPORT INFORMATION
  Report Type: Spontaneous
  Country: JP (occurrence: JP)
  Receive Date: 20130515
  Receipt Date: 20130515
  Transmission Date: 20140414
  Serious: Yes (Other)
  Sender: FDA-Public Use
  Company Number: JP-ASTELLAS-2013JP005756

PATIENT
  Age: 81 Year
  Sex: Male

DRUGS (1)
  1. VESICARE [Suspect]
     Route: 048

REACTIONS (1)
  - Dysphagia [Unknown]
